FAERS Safety Report 11650585 (Version 1)
Quarter: 2015Q4

REPORT INFORMATION
  Report Type: Spontaneous
  Country: US (occurrence: US)
  Receive Date: 20151021
  Receipt Date: 20151021
  Transmission Date: 20160304
  Serious: No
  Sender: FDA-Public Use
  Company Number: US-NOVOPROD-431515

PATIENT
  Age: 82 Year
  Sex: Female

DRUGS (1)
  1. VAGIFEM LD [Suspect]
     Active Substance: ESTRADIOL
     Indication: UTERINE PROLAPSE
     Route: 067

REACTIONS (6)
  - Vulvovaginal burning sensation [Recovering/Resolving]
  - Product quality issue [Not Recovered/Not Resolved]
  - Vulvovaginal pruritus [Not Recovered/Not Resolved]
  - Pollakiuria [Recovering/Resolving]
  - Drug ineffective [Not Recovered/Not Resolved]
  - Vulvovaginal pain [Recovering/Resolving]
